FAERS Safety Report 6454419-8 (Version None)
Quarter: 2009Q4

REPORT INFORMATION
  Report Type: 
  Country: None (occurrence: None)
  Receive Date: 20091124
  Receipt Date: 20091111
  Transmission Date: 20100525
  Serious: Yes (Hospitalization)
  Sender: FDA-Public Use
  Company Number: PHHY2009VE49659

PATIENT
  Sex: Female

DRUGS (2)
  1. DIOVAN [Suspect]
     Indication: HYPERTENSION
     Dosage: 160 MG
     Dates: start: 20090304
  2. NATRILIX [Concomitant]
     Dosage: 1.5 MG, QD
     Dates: start: 20090301

REACTIONS (2)
  - DRY MOUTH [None]
  - HYSTERECTOMY [None]
